FAERS Safety Report 25825111 (Version 1)
Quarter: 2025Q3

REPORT INFORMATION
  Report Type: Spontaneous
  Country: US (occurrence: US)
  Receive Date: 20250919
  Receipt Date: 20250919
  Transmission Date: 20251020
  Serious: No
  Sender: DR REDDYS
  Company Number: US-DRL-USA-USA/2025/09/013853

PATIENT
  Age: 57 Year
  Sex: Female

DRUGS (3)
  1. LAMOTRIGINE [Suspect]
     Active Substance: LAMOTRIGINE
     Indication: Bipolar disorder
     Dosage: EXTENDED-RELEASE TABLETS /NDC 16714-626-01
     Route: 048
     Dates: start: 20250830
  2. LAMOTRIGINE [Suspect]
     Active Substance: LAMOTRIGINE
     Dates: start: 2019
  3. LAMOTRIGINE [Suspect]
     Active Substance: LAMOTRIGINE

REACTIONS (1)
  - Rash [Unknown]

NARRATIVE: CASE EVENT DATE: 20250830
